FAERS Safety Report 5166517-X (Version None)
Quarter: 2006Q4

REPORT INFORMATION
  Report Type: 
  Country: None (occurrence: None)
  Receive Date: 20061207
  Receipt Date: 20061127
  Transmission Date: 20070319
  Serious: Yes (Other)
  Sender: FDA-Public Use
  Company Number: PHNR2006AU01618

PATIENT
  Sex: Female

DRUGS (5)
  1. TEMAZE [Concomitant]
     Indication: SLEEP DISORDER
  2. LIPITOR [Concomitant]
     Indication: METABOLIC DISORDER
  3. TOFRANIL [Concomitant]
  4. PRO-BANTHINE [Concomitant]
  5. FEMARA [Suspect]
     Indication: BREAST CANCER
     Dosage: 1.0 DOSE UNSPECIFIED DAILY
     Route: 048
     Dates: end: 20051216

REACTIONS (6)
  - FATIGUE [None]
  - HYPERHIDROSIS [None]
  - INFLUENZA LIKE ILLNESS [None]
  - PAIN [None]
  - PHARYNGOLARYNGEAL PAIN [None]
  - PNEUMONIA [None]
